FAERS Safety Report 16918412 (Version 2)
Quarter: 2020Q1

REPORT INFORMATION
  Report Type: Spontaneous
  Country: GB (occurrence: GB)
  Receive Date: 20191015
  Receipt Date: 20200316
  Transmission Date: 20200409
  Serious: Yes (Other)
  Sender: FDA-Public Use
  Company Number: GB-PFIZER INC-2019435138

PATIENT
  Age: 72 Year
  Sex: Female
  Weight: 66 kg

DRUGS (7)
  1. CITALOPRAM [Concomitant]
     Active Substance: CITALOPRAM HYDROBROMIDE
     Dosage: 1 DF, 1X/DAY
     Dates: start: 20160621
  2. HYLO TEAR [Concomitant]
     Dosage: UNK (USE AS DIRECTED)
     Dates: start: 20181115
  3. LANSOPRAZOLE. [Concomitant]
     Active Substance: LANSOPRAZOLE
     Dosage: 1 DF, 1X/DAY
     Dates: start: 20160621
  4. BRIMONIDINE TARTRATE. [Concomitant]
     Active Substance: BRIMONIDINE TARTRATE
     Dosage: 2 GTT, UNK, (ONE DROP IN BOTH EYES EVERY 12 HOURS)
     Route: 047
     Dates: start: 20171123, end: 20190906
  5. ATORVASTATIN CALCIUM. [Suspect]
     Active Substance: ATORVASTATIN CALCIUM
     Dosage: 10 MG, 1X/DAY
     Dates: start: 20181115
  6. EASYHALER [Concomitant]
     Dosage: 2 DF, DAILY; INHALE 1 DOSE TWICE DAILY
     Route: 055
     Dates: start: 20190621
  7. ACETYLSALICYLIC ACID [Concomitant]
     Active Substance: ASPIRIN
     Dosage: 1 DF, 1X/DAY
     Dates: start: 20160621

REACTIONS (1)
  - Rheumatoid arthritis [Recovered/Resolved]

NARRATIVE: CASE EVENT DATE: 20190910
